FAERS Safety Report 8942342 (Version 2)
Quarter: 2012Q4

REPORT INFORMATION
  Report Type: Spontaneous
  Country: US (occurrence: None)
  Receive Date: 20121123
  Receipt Date: 20121130
  Transmission Date: 20130627
  Serious: Yes (Death)
  Sender: FDA-Public Use
  Company Number: 2012-1326

PATIENT
  Age: 82 Year
  Sex: Female

DRUGS (4)
  1. KYPROLIS [Suspect]
     Indication: DRUG USE FOR UNKNOWN INDICATION
     Dosage: 8.4 mg (29.4 mg,2 in 1 wk),Intravenous
     Route: 042
     Dates: start: 20120917
  2. KYPROLIS [Suspect]
     Indication: MULTIPLE MYELOMA
     Dosage: 8.4 mg (29.4 mg,2 in 1 wk),Intravenous
     Route: 042
     Dates: start: 20120917
  3. KYPROLIS [Suspect]
     Indication: DRUG USE FOR UNKNOWN INDICATION
     Route: 042
     Dates: start: 20121015, end: 20121030
  4. KYPROLIS [Suspect]
     Indication: MULTIPLE MYELOMA
     Route: 042
     Dates: start: 20121015, end: 20121030

REACTIONS (2)
  - Plasma cell myeloma [None]
  - Renal failure [None]
